FAERS Safety Report 8352541-2 (Version None)
Quarter: 2012Q2

REPORT INFORMATION
  Report Type: 
  Country: None (occurrence: None)
  Receive Date: 20120511
  Receipt Date: 20120509
  Transmission Date: 20120825
  Serious: Yes (Hospitalization)
  Sender: FDA-Public Use
  Company Number: PHEH2012US009859

PATIENT
  Sex: Female

DRUGS (2)
  1. GILENYA [Suspect]
     Indication: MULTIPLE SCLEROSIS
     Dosage: 0.5 MG, BID
     Route: 048
     Dates: start: 20120201, end: 20120410
  2. SCOPOLAMINE [Concomitant]
     Dosage: UNK UKN, UNK

REACTIONS (5)
  - ANAEMIA [None]
  - ABDOMINAL DISCOMFORT [None]
  - NAUSEA [None]
  - OVERDOSE [None]
  - VOMITING [None]
